FAERS Safety Report 5070328-3 (Version None)
Quarter: 2006Q3

REPORT INFORMATION
  Report Type: 
  Country: None (occurrence: None)
  Receive Date: 20060731
  Receipt Date: 20060717
  Transmission Date: 20061208
  Serious: Yes (Death, Life-Threatening, Other)
  Sender: FDA-Public Use
  Company Number: 2006088261

PATIENT
  Age: 65 Year
  Sex: Male

DRUGS (1)
  1. VFEND [Suspect]
     Indication: INFECTION PROPHYLAXIS

REACTIONS (3)
  - LEUKOCYTOSIS [None]
  - MULTI-ORGAN FAILURE [None]
  - UROSEPSIS [None]
